FAERS Safety Report 5894860-5 (Version None)
Quarter: 2008Q3

REPORT INFORMATION
  Report Type: 
  Country: None (occurrence: None)
  Receive Date: 20080924
  Receipt Date: 20080707
  Transmission Date: 20090109
  Serious: No
  Sender: FDA-Public Use
  Company Number: US-ASTRAZENECA-2008UW13583

PATIENT
  Age: 58 Year
  Sex: Female
  Weight: 72.6 kg

DRUGS (3)
  1. SEROQUEL [Suspect]
     Indication: INSOMNIA
     Route: 048
     Dates: start: 20080101, end: 20080705
  2. AMIODARONE HCL [Concomitant]
  3. PROPRANOLOL [Concomitant]

REACTIONS (7)
  - BACK PAIN [None]
  - INSOMNIA [None]
  - MYALGIA [None]
  - NAUSEA [None]
  - OEDEMA PERIPHERAL [None]
  - PAIN IN EXTREMITY [None]
  - VOMITING [None]
